FAERS Safety Report 11611674 (Version 2)
Quarter: 2015Q4

REPORT INFORMATION
  Report Type: Spontaneous
  Country: DE (occurrence: DE)
  Receive Date: 20151008
  Receipt Date: 20151008
  Transmission Date: 20160304
  Serious: Yes (Other)
  Sender: FDA-Public Use
  Company Number: GXKR2015DE004227

PATIENT
  Age: 15 Year
  Sex: Male

DRUGS (1)
  1. CLOZAPINE. [Suspect]
     Active Substance: CLOZAPINE
     Indication: SCHIZOPHRENIA, PARANOID TYPE
     Dosage: 450 MG, UNK
     Route: 048
     Dates: start: 201506, end: 201509

REACTIONS (5)
  - Pericardial effusion [Unknown]
  - Presyncope [Recovering/Resolving]
  - Sinus tachycardia [Recovering/Resolving]
  - Myocarditis [Unknown]
  - Conduction disorder [Recovering/Resolving]

NARRATIVE: CASE EVENT DATE: 2015
